FAERS Safety Report 10502722 (Version 3)
Quarter: 2015Q2

REPORT INFORMATION
  Report Type: Spontaneous
  Country: US (occurrence: US)
  Receive Date: 20141007
  Receipt Date: 20150619
  Transmission Date: 20150821
  Serious: Yes (Other)
  Sender: FDA-Public Use
  Company Number: US-BAYER-2014-148035

PATIENT
  Age: 29 Year
  Sex: Female

DRUGS (1)
  1. MIRENA [Suspect]
     Active Substance: LEVONORGESTREL
     Indication: CONTRACEPTION
     Dosage: 20 MCG/DL, CONT
     Route: 015
     Dates: start: 20080302, end: 20091207

REACTIONS (7)
  - Pain [None]
  - Ovarian cyst [None]
  - Uterine perforation [None]
  - Pelvic pain [None]
  - Metrorrhagia [None]
  - Injury [None]
  - Genital haemorrhage [None]

NARRATIVE: CASE EVENT DATE: 2008
